FAERS Safety Report 12516576 (Version 3)
Quarter: 2017Q4

REPORT INFORMATION
  Report Type: Spontaneous
  Country: US (occurrence: US)
  Receive Date: 20160630
  Receipt Date: 20171226
  Transmission Date: 20180320
  Serious: Yes (Death, Hospitalization)
  Sender: FDA-Public Use
  Company Number: US-TEVA-671442USA

PATIENT
  Age: 75 Year
  Sex: Male

DRUGS (6)
  1. VISTOGARD [Concomitant]
     Active Substance: URIDINE TRIACETATE
     Indication: PANCREATIC CARCINOMA METASTATIC
     Dosage: AT EVERY 8 HOURS FOR 8 DOSES
     Route: 048
  2. OXYCONTIN [Concomitant]
     Active Substance: OXYCODONE HYDROCHLORIDE
     Route: 065
  3. WARFARIN [Concomitant]
     Active Substance: WARFARIN
     Route: 065
  4. FLUOROURACIL. [Suspect]
     Active Substance: FLUOROURACIL
     Indication: PANCREATIC CARCINOMA METASTATIC
     Dosage: 2550MG OVER 30 MINUTES ONCE WEEKLY ON WEEKS 1-3 FOLLOWED BY A REST PERIOD OF 1 WEEK
     Route: 040
  5. ALPRAZOLAM. [Concomitant]
     Active Substance: ALPRAZOLAM
     Route: 065
  6. ZOLPIDEM [Concomitant]
     Active Substance: ZOLPIDEM\ZOLPIDEM TARTRATE
     Route: 065

REACTIONS (10)
  - Anaemia [Unknown]
  - Mental status changes [Fatal]
  - Pancytopenia [Unknown]
  - Nausea [Unknown]
  - Weight decreased [Unknown]
  - Disseminated intravascular coagulation [Fatal]
  - Decreased appetite [Unknown]
  - Thrombocytopenia [Fatal]
  - Asthenia [Unknown]
  - Blood creatinine increased [Unknown]
